FAERS Safety Report 5534561-6 (Version None)
Quarter: 2007Q4

REPORT INFORMATION
  Report Type: 
  Country: None (occurrence: None)
  Receive Date: 20071204
  Receipt Date: 20071204
  Transmission Date: 20080405
  Serious: Yes (Life-Threatening, Hospitalization)
  Sender: FDA-Public Use
  Company Number: None

PATIENT
  Age: 46 Year
  Sex: Male
  Weight: 113.3993 kg

DRUGS (2)
  1. CELEBREX [Suspect]
     Indication: SCIATICA
     Dosage: 100 MG  BID  PO
     Route: 048
     Dates: start: 20071001, end: 20071030
  2. PROTONIX [Concomitant]

REACTIONS (1)
  - ACUTE MYOCARDIAL INFARCTION [None]
